FAERS Safety Report 9498493 (Version 1)
Quarter: 2013Q3

REPORT INFORMATION
  Report Type: Spontaneous
  Country: US (occurrence: None)
  Receive Date: 20130830
  Receipt Date: 20130830
  Transmission Date: 20140515
  Serious: Yes (Hospitalization)
  Sender: FDA-Public Use
  Company Number: SYM-2013-10026

PATIENT
  Age: 78 Year
  Sex: Female

DRUGS (1)
  1. XENAZINE (TETRABENAZINE) (TETRABENAZINE) [Suspect]
     Indication: CHOREA
     Route: 048
     Dates: start: 20110323

REACTIONS (1)
  - Aphagia [None]
